FAERS Safety Report 7228220-1 (Version None)
Quarter: 2011Q1

REPORT INFORMATION
  Report Type: 
  Country: None (occurrence: None)
  Receive Date: 20110112
  Receipt Date: 20110112
  Transmission Date: 20110831
  Serious: No
  Sender: FDA-Public Use
  Company Number: None

PATIENT
  Sex: Male
  Weight: 32.3 kg

DRUGS (1)
  1. FLUOXETINE [Suspect]
     Dosage: 10 MG DAILY PO
     Route: 048

REACTIONS (14)
  - MOOD SWINGS [None]
  - SCREAMING [None]
  - ANXIETY [None]
  - EYE MOVEMENT DISORDER [None]
  - SCAB [None]
  - TREMOR [None]
  - HYPERVENTILATION [None]
  - NERVOUSNESS [None]
  - HOSTILITY [None]
  - AGGRESSION [None]
  - EXCORIATION [None]
  - CONTUSION [None]
  - AGITATION [None]
  - PRIAPISM [None]
